FAERS Safety Report 11205065 (Version 1)
Quarter: 2015Q2

REPORT INFORMATION
  Report Type: Spontaneous
  Country: BR (occurrence: BR)
  Receive Date: 20150622
  Receipt Date: 20150622
  Transmission Date: 20150821
  Serious: Yes (Other)
  Sender: FDA-Public Use
  Company Number: BR-ROCHE-1592753

PATIENT
  Age: 66 Year
  Sex: Female
  Weight: 73 kg

DRUGS (2)
  1. ATORVASTATIN [Suspect]
     Active Substance: ATORVASTATIN
     Indication: BLOOD CHOLESTEROL
     Dosage: 1 A DAY
     Route: 065
  2. XENICAL [Suspect]
     Active Substance: ORLISTAT
     Indication: BLOOD CHOLESTEROL
     Dosage: 1, 2 OR 3 A DAY
     Route: 065

REACTIONS (9)
  - Seizure [Unknown]
  - Gait disturbance [Unknown]
  - Blood cholesterol increased [Unknown]
  - Fibromyalgia [Unknown]
  - Self-medication [Unknown]
  - Amnesia [Unknown]
  - Blood glucose increased [Recovered/Resolved]
  - Steatorrhoea [Unknown]
  - Myalgia [Unknown]

NARRATIVE: CASE EVENT DATE: 2010
